FAERS Safety Report 10169322 (Version 2)
Quarter: 2014Q2

REPORT INFORMATION
  Report Type: Spontaneous
  Country: US (occurrence: US)
  Receive Date: 20140513
  Receipt Date: 20140523
  Transmission Date: 20141212
  Serious: Yes (Hospitalization, Other)
  Sender: FDA-Public Use
  Company Number: US-RB-066946-14

PATIENT
  Age: 35 Year
  Sex: Female

DRUGS (5)
  1. SUBOXONE TABLET [Suspect]
     Dosage: TAKING VARIOUS UNPRESCRIBED DOSAGES
     Route: 060
     Dates: start: 2009, end: 2009
  2. SUBOXONE TABLET [Suspect]
     Indication: DRUG DEPENDENCE
     Dosage: PRESCRIBED DOSAGES
     Route: 060
     Dates: start: 2009, end: 201004
  3. SUBOXONE FILM [Suspect]
     Indication: DRUG DEPENDENCE
     Dosage: SUBOXONE FILM
     Route: 060
     Dates: start: 201004
  4. HYDROCHLOROTHIAZIDE [Concomitant]
     Indication: HYPERTENSION
     Route: 048
     Dates: start: 2008
  5. CARVEDILOL [Concomitant]
     Indication: HYPERTENSION
     Route: 048
     Dates: start: 2008

REACTIONS (19)
  - Substance abuse [Recovered/Resolved]
  - Maternal exposure during pregnancy [Recovered/Resolved]
  - Road traffic accident [Recovered/Resolved]
  - Tubal rupture [Recovered/Resolved]
  - Fallopian tube disorder [Recovered/Resolved]
  - Abdominal pain upper [Recovered/Resolved]
  - Ectopic pregnancy [Recovered/Resolved]
  - Loss of consciousness [Recovered/Resolved]
  - Blood pressure decreased [Recovered/Resolved]
  - Intra-abdominal haematoma [Recovered/Resolved]
  - Intra-abdominal haemorrhage [Recovered/Resolved]
  - Mobility decreased [Recovered/Resolved]
  - Pain [Recovered/Resolved]
  - Infection [Recovered/Resolved]
  - Blood potassium decreased [Recovered/Resolved]
  - Constipation [Recovered/Resolved]
  - Nephrolithiasis [Recovered/Resolved]
  - Postoperative wound complication [Recovered/Resolved]
  - Fungal infection [Recovered/Resolved]
